FAERS Safety Report 8698517 (Version 3)
Quarter: 2012Q4

REPORT INFORMATION
  Report Type: Report from Study
  Country: US (occurrence: US)
  Receive Date: 20120802
  Receipt Date: 20120919
  Transmission Date: 20130627
  Serious: Yes (Hospitalization, Other)
  Sender: FDA-Public Use
  Company Number: US-ASTELLAS-2012US006435

PATIENT
  Age: 71 Year
  Sex: Female
  Weight: 56 kg

DRUGS (13)
  1. ERLOTINIB TABLET [Suspect]
     Indication: PANCREATIC CARCINOMA
     Dosage: 100 mg, UID/QD
     Route: 048
     Dates: start: 20120330, end: 20120712
  2. GEMCITABINE [Suspect]
     Indication: PANCREATIC CARCINOMA
     Dosage: 1000 mg/m2, over 30 min weekly for weeks 1-3
     Route: 042
     Dates: start: 20120330, end: 20120706
  3. IBUPROFEN [Suspect]
     Indication: PRODUCT USED FOR UNKNOWN INDICATION
     Dosage: UNK
     Route: 065
  4. ATENOLOL [Concomitant]
     Indication: PRODUCT USED FOR UNKNOWN INDICATION
     Dosage: 50 mg, UID/QD
     Route: 065
  5. LASIX                              /00032601/ [Concomitant]
     Indication: PRODUCT USED FOR UNKNOWN INDICATION
     Dosage: 10 mg, UID/QD
     Route: 065
  6. BACTRIM DS [Concomitant]
     Indication: PRODUCT USED FOR UNKNOWN INDICATION
     Dosage: 1 DF, bid x 14 days
     Route: 065
     Dates: start: 20120713
  7. COLACE [Concomitant]
     Indication: PRODUCT USED FOR UNKNOWN INDICATION
     Dosage: 100 mg, bid, prn
     Route: 065
  8. CREON [Concomitant]
     Indication: PRODUCT USED FOR UNKNOWN INDICATION
     Dosage: 1200 mg, bid
     Route: 065
  9. LEVEMIR [Concomitant]
     Indication: PRODUCT USED FOR UNKNOWN INDICATION
     Dosage: 10 U, bid
     Route: 065
  10. LISINOPRIL [Concomitant]
     Indication: PRODUCT USED FOR UNKNOWN INDICATION
     Dosage: 20 mg, UID/QD
     Route: 065
  11. OXYCODONE [Concomitant]
     Indication: PRODUCT USED FOR UNKNOWN INDICATION
     Dosage: 5 mg, q4hr, prn
     Route: 065
  12. PANTOPRAZOLE [Concomitant]
     Indication: PRODUCT USED FOR UNKNOWN INDICATION
     Dosage: 40 mg, Unknown/D
     Route: 065
  13. SENNA                              /00142201/ [Concomitant]
     Indication: PRODUCT USED FOR UNKNOWN INDICATION
     Dosage: 2 tabs, prn
     Route: 065

REACTIONS (18)
  - Anaemia [Recovering/Resolving]
  - Performance status decreased [Unknown]
  - Hepatic lesion [Unknown]
  - Fluid overload [Unknown]
  - Stress cardiomyopathy [Unknown]
  - Dehydration [Not Recovered/Not Resolved]
  - Muscular weakness [Recovering/Resolving]
  - Gastritis [Recovering/Resolving]
  - Abdominal pain upper [Unknown]
  - Duodenal ulcer [Unknown]
  - Gastric ulcer [Unknown]
  - Haematemesis [Unknown]
  - Decreased appetite [Unknown]
  - Weight decreased [Unknown]
  - Staphylococcal infection [Unknown]
  - Epistaxis [Unknown]
  - Pulmonary oedema [Recovering/Resolving]
  - Myocardial infarction [Recovering/Resolving]
